FAERS Safety Report 21340288 (Version 2)
Quarter: 2022Q3

REPORT INFORMATION
  Report Type: Spontaneous
  Country: CZ (occurrence: CZ)
  Receive Date: 20220916
  Receipt Date: 20220929
  Transmission Date: 20221027
  Serious: No
  Sender: FDA-Public Use
  Company Number: CZ-CELLTRION INC.-2022CZ014827

PATIENT

DRUGS (1)
  1. INFLIXIMAB [Suspect]
     Active Substance: INFLIXIMAB
     Indication: Colitis ulcerative
     Dosage: 10 MG/KG, INTENSIFIED
     Dates: end: 20220805

REACTIONS (2)
  - Loss of therapeutic response [Unknown]
  - Overdose [Unknown]
